FAERS Safety Report 13788275 (Version 1)
Quarter: 2017Q3

REPORT INFORMATION
  Report Type: Spontaneous
  Country: US (occurrence: US)
  Receive Date: 20170725
  Receipt Date: 20170725
  Transmission Date: 20171127
  Serious: No
  Sender: FDA-Public Use
  Company Number: US-UNITED THERAPEUTICS-UNT-2017-003037

PATIENT
  Age: 67 Year
  Sex: Female
  Weight: 72.8 kg

DRUGS (14)
  1. REMODULIN [Suspect]
     Active Substance: TREPROSTINIL
     Indication: PULMONARY HYPERTENSION
     Dosage: 0.002 ?G/KG, CONTINUING
     Route: 041
     Dates: start: 20170207
  2. ORENITRAM [Suspect]
     Active Substance: TREPROSTINIL
     Dosage: UNK
     Route: 048
  3. LETAIRIS [Suspect]
     Active Substance: AMBRISENTAN
     Dosage: UNK
     Route: 048
  4. COUMADIN [Concomitant]
     Active Substance: WARFARIN SODIUM
     Indication: PRODUCT USED FOR UNKNOWN INDICATION
  5. LETAIRIS [Suspect]
     Active Substance: AMBRISENTAN
     Dosage: UNK
     Route: 048
  6. ATENOLOL. [Concomitant]
     Active Substance: ATENOLOL
     Indication: PRODUCT USED FOR UNKNOWN INDICATION
  7. ORENITRAM [Suspect]
     Active Substance: TREPROSTINIL
     Dosage: UNK
     Route: 048
  8. LOVASTATIN. [Concomitant]
     Active Substance: LOVASTATIN
     Indication: PRODUCT USED FOR UNKNOWN INDICATION
  9. ORENITRAM [Suspect]
     Active Substance: TREPROSTINIL
     Dosage: 1 MG, UNK
     Route: 048
  10. ORENITRAM [Suspect]
     Active Substance: TREPROSTINIL
     Indication: PULMONARY HYPERTENSION
     Dosage: 3.125 MG, BID
     Route: 048
     Dates: start: 20160315
  11. ORENITRAM [Suspect]
     Active Substance: TREPROSTINIL
     Dosage: 0.25 MG, UNK
     Route: 048
  12. REVATIO [Concomitant]
     Active Substance: SILDENAFIL CITRATE
     Indication: PRODUCT USED FOR UNKNOWN INDICATION
  13. LETAIRIS [Suspect]
     Active Substance: AMBRISENTAN
     Indication: PRODUCT USED FOR UNKNOWN INDICATION
     Dosage: 10 MG, QD
     Route: 048
     Dates: start: 20070810
  14. HYDROCHLOROTHIAZIDE. [Concomitant]
     Active Substance: HYDROCHLOROTHIAZIDE
     Indication: PRODUCT USED FOR UNKNOWN INDICATION

REACTIONS (1)
  - Dermatitis contact [Unknown]

NARRATIVE: CASE EVENT DATE: 201702
